FAERS Safety Report 9717777 (Version 1)
Quarter: 2013Q4

REPORT INFORMATION
  Report Type: Spontaneous
  Country: JP (occurrence: JP)
  Receive Date: 20131127
  Receipt Date: 20131127
  Transmission Date: 20140711
  Serious: Yes (Hospitalization)
  Sender: FDA-Public Use
  Company Number: JP-VIIV HEALTHCARE LIMITED-B0947945A

PATIENT
  Sex: Male

DRUGS (4)
  1. CELSENTRI [Suspect]
     Indication: HIV INFECTION
     Dosage: 300MG TWICE PER DAY
     Route: 048
     Dates: start: 201301, end: 201302
  2. CELSENTRI [Suspect]
     Indication: HIV INFECTION
     Dosage: 300MG TWICE PER DAY
     Route: 048
     Dates: start: 201302, end: 201309
  3. TRUVADA [Concomitant]
     Dosage: 1IUAX PER DAY
     Route: 048
     Dates: start: 201301, end: 201302
  4. TRUVADA [Concomitant]
     Dosage: 1IUAX PER DAY
     Route: 048
     Dates: start: 201302

REACTIONS (1)
  - Immune reconstitution inflammatory syndrome [Recovered/Resolved]
